FAERS Safety Report 9023746 (Version 1)
Quarter: 2013Q1

REPORT INFORMATION
  Report Type: Spontaneous
  Country: JP (occurrence: JP)
  Receive Date: 20130121
  Receipt Date: 20130121
  Transmission Date: 20140127
  Serious: Yes (Other)
  Sender: FDA-Public Use
  Company Number: JP-SANOFI-AVENTIS-2013SA003786

PATIENT
  Age: 60 Year
  Sex: Female
  Weight: 54 kg

DRUGS (8)
  1. OXALIPLATIN [Suspect]
     Indication: RECTAL CANCER
     Dosage: 3 CYCLES
     Route: 041
     Dates: start: 200608
  2. CAMPTO [Suspect]
     Indication: RECTAL CANCER
     Dosage: TOTAL 22 CYCLES
     Route: 041
     Dates: end: 200709
  3. CALCIUM LEVOFOLINATE [Concomitant]
     Indication: RECTAL CANCER
     Dosage: 3 CYCLES
     Dates: start: 200608
  4. CALCIUM LEVOFOLINATE [Concomitant]
     Indication: RECTAL CANCER
     Dosage: 22 CYCLES
     Dates: end: 200709
  5. FLUOROURACIL [Concomitant]
     Indication: RECTAL CANCER
     Route: 040
     Dates: start: 200608
  6. FLUOROURACIL [Concomitant]
     Indication: RECTAL CANCER
     Dosage: CONTINOUS INFUSION WAS GIVEN, ON DAY 1-2, TOTAL 3 CYCLES
  7. FLUOROURACIL [Concomitant]
     Indication: RECTAL CANCER
     Route: 040
  8. FLUOROURACIL [Concomitant]
     Indication: RECTAL CANCER
     Dosage: CONTINOUS INFUSION , DAY 1-2, TOTAL 22 CYCLES
     Dates: end: 200709

REACTIONS (2)
  - Upper respiratory tract inflammation [Unknown]
  - Neuropathy peripheral [Unknown]
